FAERS Safety Report 6638593-6 (Version None)
Quarter: 2010Q1

REPORT INFORMATION
  Report Type: 
  Country: None (occurrence: None)
  Receive Date: 20100316
  Receipt Date: 20100316
  Transmission Date: 20100710
  Serious: Yes (Hospitalization)
  Sender: FDA-Public Use
  Company Number: None

PATIENT
  Sex: Male
  Weight: 64.85 kg

DRUGS (6)
  1. CISPLATIN [Suspect]
     Dosage: 115 MG
     Dates: end: 20100308
  2. TAXOL [Suspect]
     Dosage: 360 MG
     Dates: end: 20100308
  3. CANDESARTAN [Concomitant]
  4. ESCITALOPRAM [Concomitant]
  5. EZETIMIBE/SIMVASTATIN [Concomitant]
  6. METOPROLOL [Concomitant]

REACTIONS (3)
  - ASTHENIA [None]
  - FALL [None]
  - ORTHOSTATIC HYPOTENSION [None]
